FAERS Safety Report 7387411-X (Version None)
Quarter: 2011Q1

REPORT INFORMATION
  Report Type: 
  Country: None (occurrence: None)
  Receive Date: 20110331
  Receipt Date: 20110304
  Transmission Date: 20110831
  Serious: No
  Sender: FDA-Public Use
  Company Number: US-B.I. PHARMACEUTICALS,INC./RIDGEFIELD-2011-BP-06866BP

PATIENT
  Sex: Female

DRUGS (7)
  1. LORAZEPAM [Concomitant]
     Indication: ANXIETY
  2. PRADAXA [Suspect]
     Indication: ATRIAL FIBRILLATION
     Dosage: 300 MG
     Route: 048
     Dates: start: 20110224
  3. LORAZEPAM [Concomitant]
     Indication: ATRIAL FIBRILLATION
     Route: 048
  4. MULTIVITE [Concomitant]
     Indication: VITAMIN SUPPLEMENTATION
     Route: 048
  5. DIGOXIN [Concomitant]
     Indication: ATRIAL FIBRILLATION
     Route: 048
  6. LASIX [Concomitant]
     Indication: ATRIAL FIBRILLATION
     Dosage: 40 MG
     Route: 048
  7. POTASSIUM [Concomitant]
     Indication: ELECTROLYTE SUBSTITUTION THERAPY
     Dosage: 40 MEQ
     Route: 048

REACTIONS (3)
  - DYSURIA [None]
  - HAEMORRHOIDS [None]
  - ANORECTAL DISCOMFORT [None]
